FAERS Safety Report 4754228-1 (Version None)
Quarter: 2005Q3

REPORT INFORMATION
  Report Type: 
  Country: None (occurrence: None)
  Receive Date: 20050825
  Receipt Date: 20050825
  Transmission Date: 20060218
  Serious: Yes (Other)
  Sender: FDA-Public Use
  Company Number: None

PATIENT
  Age: 73 Year
  Sex: Female
  Weight: 98.8842 kg

DRUGS (1)
  1. DEXEDRINE [Suspect]
     Indication: NARCOLEPSY
     Dosage: 15 MG 1 PO Q AM
     Route: 048

REACTIONS (1)
  - DRUG INEFFECTIVE [None]
